FAERS Safety Report 24413127 (Version 1)
Quarter: 2024Q4

REPORT INFORMATION
  Report Type: Spontaneous
  Country: US (occurrence: US)
  Receive Date: 20241008
  Receipt Date: 20241008
  Transmission Date: 20250114
  Serious: No
  Sender: SANOFI AVENTIS
  Company Number: US-SANOFI-02236656

PATIENT
  Age: 51 Year
  Sex: Female

DRUGS (3)
  1. DUPIXENT [Suspect]
     Active Substance: DUPILUMAB
     Indication: Asthma
     Dosage: 200 MG, QOW
     Dates: start: 2024
  2. PREDNISONE [Concomitant]
     Active Substance: PREDNISONE
     Dosage: UNK, MAYBE TWO OR THREE TIMES
  3. MONTELUKAST [Concomitant]
     Active Substance: MONTELUKAST
     Dosage: UNK, QD

REACTIONS (3)
  - Bone pain [Unknown]
  - Influenza [Unknown]
  - Arthralgia [Unknown]
